FAERS Safety Report 14884667 (Version 1)
Quarter: 2018Q2

REPORT INFORMATION
  Report Type: Spontaneous
  Country: TW (occurrence: TW)
  Receive Date: 20180511
  Receipt Date: 20180511
  Transmission Date: 20180711
  Serious: Yes (Other)
  Sender: FDA-Public Use
  Company Number: TW-BIOCRYST PHARMACEUTICALS, INC.-2018BCR00196

PATIENT
  Age: 54 Year
  Sex: Female

DRUGS (1)
  1. RAPIACTA [Suspect]
     Active Substance: PERAMIVIR
     Indication: INFLUENZA
     Dosage: 300 MG, UNK
     Route: 042
     Dates: start: 20170904, end: 20170908

REACTIONS (1)
  - White blood cell count decreased [Recovering/Resolving]

NARRATIVE: CASE EVENT DATE: 20170912
